FAERS Safety Report 12872626 (Version 1)
Quarter: 2016Q4

REPORT INFORMATION
  Report Type: Spontaneous
  Country: JP (occurrence: JP)
  Receive Date: 20161021
  Receipt Date: 20161021
  Transmission Date: 20170207
  Serious: Yes (Other)
  Sender: FDA-Public Use
  Company Number: JP-ACCORD-044967

PATIENT
  Age: 61 Year
  Sex: Male

DRUGS (2)
  1. CISPLATIN. [Suspect]
     Active Substance: CISPLATIN
     Indication: OESOPHAGEAL CARCINOMA
     Dosage: PER DAY, DAY 1 EVERY 4 WEEKS?RECEIVED TWO COURSES
  2. FLUOROURACIL. [Suspect]
     Active Substance: FLUOROURACIL
     Indication: OESOPHAGEAL CARCINOMA
     Dosage: PER DAY, DAYS 1-5 EVERY 4 WEEKS?RECEIVED TWO COURSES

REACTIONS (2)
  - Pneumonia [Unknown]
  - Cytomegalovirus oesophagitis [Recovered/Resolved]
